FAERS Safety Report 4986157-2 (Version None)
Quarter: 2006Q2

REPORT INFORMATION
  Report Type: 
  Country: None (occurrence: None)
  Receive Date: 20060428
  Receipt Date: 20050309
  Transmission Date: 20061013
  Serious: Yes (Hospitalization, Other)
  Sender: FDA-Public Use
  Company Number: US-MERCK-0503USA01663

PATIENT
  Age: 64 Year
  Sex: Male

DRUGS (7)
  1. VIOXX [Suspect]
     Indication: ARTHRITIS
     Route: 048
     Dates: start: 20020101
  2. VIOXX [Suspect]
     Indication: MYALGIA
     Route: 048
     Dates: start: 20020101
  3. GLUCOPHAGE [Concomitant]
     Indication: DIABETES MELLITUS NON-INSULIN-DEPENDENT
     Route: 048
  4. LISINOPRIL [Concomitant]
     Indication: RENAL DISORDER
     Route: 065
  5. FLOMAX (MORNIFLUMATE) [Concomitant]
     Indication: BENIGN PROSTATIC HYPERPLASIA
     Route: 065
  6. ASPIRIN [Concomitant]
     Indication: ANTIPLATELET THERAPY
     Route: 065
  7. [THERAPY UNSPECIFIED] [Concomitant]
     Route: 065

REACTIONS (13)
  - ABDOMINAL PAIN [None]
  - BLINDNESS CORTICAL [None]
  - CARDIOVASCULAR DISORDER [None]
  - CEREBROVASCULAR ACCIDENT [None]
  - DEPRESSION [None]
  - DIABETIC NEUROPATHY [None]
  - DIVERTICULITIS [None]
  - ECZEMA [None]
  - HEMIANOPIA [None]
  - LIP DRY [None]
  - MOUTH ULCERATION [None]
  - NASAL DRYNESS [None]
  - SOMNOLENCE [None]
